FAERS Safety Report 16860484 (Version 1)
Quarter: 2019Q3

REPORT INFORMATION
  Report Type: Spontaneous
  Country: US (occurrence: US)
  Receive Date: 20190927
  Receipt Date: 20190927
  Transmission Date: 20191005
  Serious: No
  Sender: FDA-Public Use
  Company Number: US-PFIZER INC-2019368017

PATIENT

DRUGS (2)
  1. NORVASC [Suspect]
     Active Substance: AMLODIPINE BESYLATE
     Dosage: 10 MG, UNK
  2. NORVASC [Suspect]
     Active Substance: AMLODIPINE BESYLATE
     Dosage: 10 MG, UNK

REACTIONS (5)
  - Dyspepsia [Unknown]
  - Poor quality product administered [Unknown]
  - Product colour issue [Unknown]
  - Weight decreased [Unknown]
  - Fatigue [Unknown]
